FAERS Safety Report 20231705 (Version 1)
Quarter: 2021Q4

REPORT INFORMATION
  Report Type: Spontaneous
  Country: US (occurrence: US)
  Receive Date: 20211227
  Receipt Date: 20211227
  Transmission Date: 20220303
  Serious: No
  Sender: FDA-Public Use
  Company Number: US-AVEO ONCOLOGY-2021-AVEO-US003687

PATIENT

DRUGS (17)
  1. FOTIVDA [Suspect]
     Active Substance: TIVOZANIB HYDROCHLORIDE
     Indication: Renal cell carcinoma
     Dosage: 1.34 MG DAILY FOR 21 DAYS THEN 7 DAYS OFF
     Route: 048
     Dates: start: 20210921
  2. TYLENOL [Concomitant]
     Active Substance: ACETAMINOPHEN
  3. ALPHA LIPOIC ACID [Concomitant]
     Active Substance: .ALPHA.-LIPOIC ACID
  4. GLUCOSAMINE [Concomitant]
     Active Substance: GLUCOSAMINE
  5. COENZYME Q10 [Concomitant]
     Active Substance: DIETARY SUPPLEMENT\UBIDECARENONE
  6. COLACE [Concomitant]
     Active Substance: DOCUSATE SODIUM
  7. CULTURELLE PRO WELL 3 IN 1 COMPLETE [Concomitant]
  8. GARLIC [Concomitant]
     Active Substance: GARLIC
  9. HYDROXYZINE [Concomitant]
     Active Substance: HYDROXYZINE HYDROCHLORIDE
  10. LEVOTHYROXINE [Concomitant]
     Active Substance: LEVOTHYROXINE
  11. MAGNESIUM OXIDE [Concomitant]
     Active Substance: MAGNESIUM OXIDE
  12. MELATONIN [Concomitant]
     Active Substance: MELATONIN
  13. ONDANSETRON [Concomitant]
     Active Substance: ONDANSETRON
  14. PEPCID [Concomitant]
     Active Substance: FAMOTIDINE
  15. SENNA S [Concomitant]
     Active Substance: DOCUSATE SODIUM\SENNA LEAF
  16. VITAMIN D3 [Concomitant]
     Active Substance: CHOLECALCIFEROL
  17. MENAQUINONE 6 [Concomitant]
     Active Substance: MENAQUINONE 6

REACTIONS (5)
  - Fatigue [Unknown]
  - Dysphonia [Unknown]
  - Decreased appetite [Unknown]
  - Weight decreased [Unknown]
  - Laboratory test abnormal [Unknown]
